FAERS Safety Report 9024634 (Version 2)
Quarter: 2013Q2

REPORT INFORMATION
  Report Type: Spontaneous
  Country: JP (occurrence: JP)
  Receive Date: 20130120
  Receipt Date: 20130505
  Transmission Date: 20140414
  Serious: Yes (Hospitalization)
  Sender: FDA-Public Use
  Company Number: PHHY2013JP004300

PATIENT
  Sex: Female

DRUGS (3)
  1. MEXILETINE [Suspect]
     Indication: DIABETIC NEUROPATHY
  2. BETAMETHASONE W/DEXCHLORPHENIRAMINE MALEATE [Concomitant]
  3. BETAMETHASONE [Concomitant]

REACTIONS (11)
  - Drug reaction with eosinophilia and systemic symptoms [Recovered/Resolved]
  - Pyrexia [Recovered/Resolved]
  - Erythema [Recovered/Resolved]
  - Malaise [Recovered/Resolved]
  - Thirst [Recovered/Resolved]
  - Hyperglycaemia [Recovered/Resolved]
  - Diabetic ketoacidosis [Recovered/Resolved]
  - Depressed level of consciousness [Recovered/Resolved]
  - Face oedema [Recovered/Resolved]
  - Rash [Recovered/Resolved]
  - Hyperaemia [Recovered/Resolved]
